FAERS Safety Report 6906639-3 (Version None)
Quarter: 2010Q3

REPORT INFORMATION
  Report Type: 
  Country: None (occurrence: None)
  Receive Date: 20100804
  Receipt Date: 20100722
  Transmission Date: 20110219
  Serious: No
  Sender: FDA-Public Use
  Company Number: DE-GENENTECH-301245

PATIENT
  Sex: Female
  Weight: 65 kg

DRUGS (3)
  1. LUCENTIS [Suspect]
     Indication: MACULAR DEGENERATION
     Dosage: 1 AMP, QD
     Route: 031
     Dates: start: 20100317
  2. LUCENTIS [Suspect]
     Dosage: 1 AMP, QD
     Route: 031
     Dates: start: 20100414
  3. LUCENTIS [Suspect]
     Dosage: 1 AMP, QD
     Route: 031
     Dates: start: 20100512

REACTIONS (2)
  - HERPES ZOSTER [None]
  - MEMORY IMPAIRMENT [None]
